FAERS Safety Report 23502822 (Version 1)
Quarter: 2024Q1

REPORT INFORMATION
  Report Type: Spontaneous
  Country: US (occurrence: US)
  Receive Date: 20240208
  Receipt Date: 20240208
  Transmission Date: 20240410
  Serious: No
  Sender: FDA-Public Use
  Company Number: US-INTRA-CELLULAR THERAPIES, INC.-2023ICT01038

PATIENT
  Age: 34 Year
  Sex: Male

DRUGS (3)
  1. CAPLYTA [Suspect]
     Active Substance: LUMATEPERONE
     Indication: Bipolar disorder
     Dosage: 42 MG, 1X/DAY
     Dates: start: 20230721, end: 20230722
  2. LITHIUM [Concomitant]
     Active Substance: LITHIUM
  3. DEPAKOTE [Concomitant]
     Active Substance: DIVALPROEX SODIUM
     Dosage: UNK UNK, 1X/DAY

REACTIONS (3)
  - Abnormal dreams [Recovered/Resolved]
  - Sudden onset of sleep [Recovered/Resolved]
  - Abnormal sleep-related event [Recovered/Resolved]

NARRATIVE: CASE EVENT DATE: 20230721
